FAERS Safety Report 7226761-4 (Version None)
Quarter: 2011Q1

REPORT INFORMATION
  Report Type: 
  Country: None (occurrence: None)
  Receive Date: 20110110
  Receipt Date: 20110110
  Transmission Date: 20110831
  Serious: Yes (Life-Threatening, Hospitalization)
  Sender: FDA-Public Use
  Company Number: None

PATIENT
  Age: 60 Year
  Sex: Male
  Weight: 92 kg

DRUGS (2)
  1. SULFAMETHOXAZOLE AND TRIMETHOPRIM [Suspect]
     Dosage: 2 TAB BID PO
     Route: 048
     Dates: start: 20101112, end: 20101122
  2. LISINOPRIL [Suspect]
     Indication: PAIN
     Dosage: 5 MG EVERY DAY PO
     Route: 048
     Dates: start: 20090205, end: 20101122

REACTIONS (2)
  - RENAL FAILURE ACUTE [None]
  - HYPERKALAEMIA [None]
